FAERS Safety Report 5086414-8 (Version None)
Quarter: 2006Q3

REPORT INFORMATION
  Report Type: 
  Country: None (occurrence: None)
  Receive Date: 20060823
  Receipt Date: 20060810
  Transmission Date: 20061208
  Serious: Yes (Death, Other)
  Sender: FDA-Public Use
  Company Number: PHBS2006PL12197

PATIENT
  Age: 55 Year

DRUGS (6)
  1. ZOLEDRONIC ACID [Suspect]
     Indication: MULTIPLE MYELOMA
     Dosage: 4 MG, EVERY MONTH
     Route: 042
  2. CYCLOPHOSPHAMIDE W/VINCRISTINE/PREDNISONE [Concomitant]
     Dosage: UNK, UNK
     Route: 065
     Dates: start: 19990101, end: 20000101
  3. MELPHALAN [Concomitant]
     Dosage: UNK, UNK
     Route: 065
     Dates: start: 19990101, end: 20000101
  4. ADRIAMYCINE + VINCRISTINE [Concomitant]
     Dosage: UNK, UNK
     Route: 065
     Dates: start: 19990101, end: 20000101
  5. CARMUSTINE [Concomitant]
     Dosage: UNK, UNK
     Route: 065
     Dates: start: 19990101, end: 20000101
  6. PREDNISONE [Concomitant]
     Dosage: UNK, UNK
     Route: 065
     Dates: start: 19990101, end: 20000101

REACTIONS (9)
  - BONE DEBRIDEMENT [None]
  - BONE DISORDER [None]
  - DENTAL CARIES [None]
  - DENTURE WEARER [None]
  - OSTEONECROSIS [None]
  - PAIN IN JAW [None]
  - PANCYTOPENIA [None]
  - SEPSIS [None]
  - TOOTH EXTRACTION [None]
